FAERS Safety Report 11057578 (Version 1)
Quarter: 2015Q2

REPORT INFORMATION
  Report Type: Spontaneous
  Country: US (occurrence: US)
  Receive Date: 20150422
  Receipt Date: 20150422
  Transmission Date: 20150821
  Serious: Yes (Hospitalization)
  Sender: FDA-Public Use
  Company Number: PHEH2015US006933

PATIENT
  Sex: Male

DRUGS (1)
  1. ZYKADIA [Suspect]
     Active Substance: CERITINIB
     Indication: NON-SMALL CELL LUNG CANCER
     Dosage: 750 MG, QD
     Route: 048

REACTIONS (5)
  - Feeding disorder [Unknown]
  - Intestinal obstruction [Unknown]
  - Constipation [Recovered/Resolved]
  - Gastrointestinal disorder [Unknown]
  - Intestinal dilatation [Unknown]
